FAERS Safety Report 13228488 (Version 1)
Quarter: 2017Q1

REPORT INFORMATION
  Report Type: Spontaneous
  Country: US (occurrence: US)
  Receive Date: 20170213
  Receipt Date: 20170213
  Transmission Date: 20170428
  Serious: No
  Sender: FDA-Public Use
  Company Number: US-ROCHE-1188727

PATIENT

DRUGS (2)
  1. PULMOZYME [Suspect]
     Active Substance: DORNASE ALFA
     Indication: CHRONIC OBSTRUCTIVE PULMONARY DISEASE
     Dosage: 2-3 DAYS
     Route: 065
  2. MUCOMYST [Concomitant]
     Active Substance: ACETYLCYSTEINE

REACTIONS (1)
  - Drug prescribing error [Unknown]
